FAERS Safety Report 6278477-9 (Version None)
Quarter: 2009Q3

REPORT INFORMATION
  Report Type: 
  Country: None (occurrence: None)
  Receive Date: 20090721
  Receipt Date: 20090702
  Transmission Date: 20100115
  Serious: Yes (Other)
  Sender: FDA-Public Use
  Company Number: 20090277

PATIENT
  Age: 19 Year
  Sex: Female

DRUGS (2)
  1. VENOFER [Suspect]
     Indication: IRON DEFICIENCY ANAEMIA
     Dosage: 200 MG X 5 DOSES
     Route: 042
     Dates: start: 20090311, end: 20090506
  2. VENOFER [Suspect]
     Indication: SERUM FERRITIN DECREASED
     Dosage: 200 MG X 5 DOSES
     Route: 042
     Dates: start: 20090311, end: 20090506

REACTIONS (2)
  - EXTRASYSTOLES [None]
  - TACHYCARDIA [None]
